FAERS Safety Report 20127829 (Version 1)
Quarter: 2021Q4

REPORT INFORMATION
  Report Type: Spontaneous
  Country: CN (occurrence: CN)
  Receive Date: 20211129
  Receipt Date: 20211129
  Transmission Date: 20220303
  Serious: Yes (Other)
  Sender: FDA-Public Use
  Company Number: CN-PFIZER INC-202101596520

PATIENT
  Age: 40 Year
  Sex: Female

DRUGS (2)
  1. PACLITAXEL [Suspect]
     Active Substance: PACLITAXEL
     Indication: Cervix carcinoma
     Dosage: 240.000 MG, 1X/DAY
     Route: 041
     Dates: start: 20201218, end: 20201218
  2. NEDAPLATIN [Suspect]
     Active Substance: NEDAPLATIN
     Indication: Cervix carcinoma
     Dosage: 120.000 MG, 1X/DAY
     Route: 041
     Dates: start: 20201219, end: 20201219

REACTIONS (2)
  - Myelosuppression [Unknown]
  - White blood cell count decreased [Recovering/Resolving]

NARRATIVE: CASE EVENT DATE: 20210106
